FAERS Safety Report 8066881-8 (Version None)
Quarter: 2012Q1

REPORT INFORMATION
  Report Type: 
  Country: None (occurrence: None)
  Receive Date: 20120124
  Receipt Date: 20120119
  Transmission Date: 20120608
  Serious: Yes (Other)
  Sender: FDA-Public Use
  Company Number: US-TEVA-314690USA

PATIENT
  Sex: Female

DRUGS (2)
  1. CLARAVIS [Suspect]
     Dosage: 40 MILLIGRAM;
     Route: 048
     Dates: start: 20110501, end: 20111001
  2. AMPICILLIN [Concomitant]
     Indication: ACNE
     Dosage: 1000 MILLIGRAM;
     Route: 048
     Dates: start: 20111116

REACTIONS (1)
  - UNINTENDED PREGNANCY [None]
